FAERS Safety Report 25295920 (Version 3)
Quarter: 2025Q3

REPORT INFORMATION
  Report Type: Spontaneous
  Country: US (occurrence: US)
  Receive Date: 20250511
  Receipt Date: 20250703
  Transmission Date: 20251021
  Serious: No
  Sender: DR REDDYS
  Company Number: US-DRL-USA-USA/2025/04/005726

PATIENT
  Age: 75 Year
  Sex: Female

DRUGS (2)
  1. CLONIDINE [Suspect]
     Active Substance: CLONIDINE
     Indication: Hypertension
     Route: 062
  2. CLONIDINE [Suspect]
     Active Substance: CLONIDINE
     Route: 062
     Dates: start: 20250406

REACTIONS (1)
  - Product adhesion issue [Unknown]
